FAERS Safety Report 10194703 (Version 3)
Quarter: 2014Q2

REPORT INFORMATION
  Report Type: Report from Study
  Country: CL (occurrence: CL)
  Receive Date: 20140526
  Receipt Date: 20140623
  Transmission Date: 20141212
  Serious: Yes (Death, Hospitalization, Other)
  Sender: FDA-Public Use
  Company Number: CL-ACTELION-A-CH2012-75453

PATIENT
  Age: 22 Year
  Sex: Male
  Weight: 70.5 kg

DRUGS (3)
  1. MACITENTAN [Suspect]
     Indication: PULMONARY ARTERIAL HYPERTENSION
     Dosage: 10 MG, QD
     Route: 048
     Dates: start: 20120214, end: 20121127
  2. SILDENAFIL [Concomitant]
     Dosage: UNK
     Dates: start: 200901
  3. ACENOCUMAROL [Concomitant]
     Dosage: UNK
     Dates: start: 200901

REACTIONS (13)
  - Atrial flutter [Fatal]
  - Pulmonary sepsis [Fatal]
  - Cardiogenic shock [Fatal]
  - Pulmonary hypertension [Fatal]
  - Liver function test abnormal [Not Recovered/Not Resolved]
  - Dyspnoea [Fatal]
  - Malaise [Fatal]
  - Palpitations [Fatal]
  - Right ventricular failure [Fatal]
  - Aspartate aminotransferase increased [Not Recovered/Not Resolved]
  - Alanine aminotransferase increased [Not Recovered/Not Resolved]
  - Blood bilirubin increased [Not Recovered/Not Resolved]
  - Multi-organ failure [Fatal]
